FAERS Safety Report 8573468-7 (Version None)
Quarter: 2012Q3

REPORT INFORMATION
  Report Type: 
  Country: None (occurrence: None)
  Receive Date: 20120806
  Receipt Date: 20120801
  Transmission Date: 20120928
  Serious: Yes (Death)
  Sender: FDA-Public Use
  Company Number: GT-ELI_LILLY_AND_COMPANY-GT201208000775

PATIENT
  Sex: Male

DRUGS (3)
  1. EFFIENT [Suspect]
     Indication: ANTIPLATELET THERAPY
     Dosage: 10 MG, QD
     Dates: start: 20120701
  2. ASPIRIN [Concomitant]
     Indication: ANTIPLATELET THERAPY
  3. PLAVIX [Concomitant]
     Indication: ANTIPLATELET THERAPY

REACTIONS (1)
  - CARDIAC FAILURE [None]
